FAERS Safety Report 8501289-X (Version None)
Quarter: 2012Q3

REPORT INFORMATION
  Report Type: 
  Country: None (occurrence: None)
  Receive Date: 20120710
  Receipt Date: 20120706
  Transmission Date: 20120928
  Serious: Yes (Other)
  Sender: FDA-Public Use
  Company Number: US-PFIZER INC-2012162543

PATIENT
  Age: 40 Year
  Sex: Male

DRUGS (2)
  1. LYRICA [Suspect]
     Indication: CHRONIC FATIGUE SYNDROME
  2. LYRICA [Suspect]
     Indication: FIBROMYALGIA
     Dosage: UNK

REACTIONS (3)
  - ALOPECIA [None]
  - WEIGHT INCREASED [None]
  - PAIN [None]
